FAERS Safety Report 19707861 (Version 2)
Quarter: 2021Q3

REPORT INFORMATION
  Report Type: Other
  Country: US (occurrence: US)
  Receive Date: 20210816
  Receipt Date: 20210910
  Transmission Date: 20211014
  Serious: Yes (Death, Other)
  Sender: FDA-Public Use
  Company Number: US-ROCHE-2888651

PATIENT
  Sex: Female
  Weight: 72.64 kg

DRUGS (23)
  1. CALCIUM CITRATE [Concomitant]
     Active Substance: CALCIUM CITRATE
  2. NYSTATIN. [Concomitant]
     Active Substance: NYSTATIN
     Dosage: 100, 000 UNITS
  3. NYSTATIN. [Concomitant]
     Active Substance: NYSTATIN
     Route: 061
  4. FLUCONAZOLE. [Concomitant]
     Active Substance: FLUCONAZOLE
  5. CEPHALEXIN. [Concomitant]
     Active Substance: CEPHALEXIN
  6. PROGESTERONE. [Concomitant]
     Active Substance: PROGESTERONE
     Dosage: EVERY DAY AT BEDTIME
     Route: 048
  7. TIZANIDINE. [Concomitant]
     Active Substance: TIZANIDINE
     Dosage: AT BEDTIME
     Route: 048
  8. COLLAGENASE SANTYL [Concomitant]
     Active Substance: COLLAGENASE CLOSTRIDIUM HISTOLYTICUM
     Dosage: 250 UNITS/GRAM
     Route: 061
  9. LEVOTHYROXINE. [Concomitant]
     Active Substance: LEVOTHYROXINE
  10. CLINDAMYCIN HCL [Concomitant]
     Active Substance: CLINDAMYCIN HYDROCHLORIDE
     Route: 048
  11. OCREVUS [Suspect]
     Active Substance: OCRELIZUMAB
     Indication: MULTIPLE SCLEROSIS
     Route: 065
     Dates: start: 2017
  12. OXYCODONE [Concomitant]
     Active Substance: OXYCODONE
  13. OXYBUTYNIN HYDROCHLORIDE [Concomitant]
     Active Substance: OXYBUTYNIN CHLORIDE
  14. LOPERAMIDE [Concomitant]
     Active Substance: LOPERAMIDE
  15. CEFDINIR. [Concomitant]
     Active Substance: CEFDINIR
  16. PAROXETINE. [Concomitant]
     Active Substance: PAROXETINE
     Dosage: IN MORNING
     Route: 048
  17. METRONIDAZOLE. [Concomitant]
     Active Substance: METRONIDAZOLE
  18. LINEZOLIDE [Concomitant]
     Active Substance: LINEZOLID
  19. AMITRIPTYLINE [Concomitant]
     Active Substance: AMITRIPTYLINE
     Dosage: AS NEEDED
     Route: 048
  20. NYSTATIN. [Concomitant]
     Active Substance: NYSTATIN
     Route: 061
  21. MUPIROCIN. [Concomitant]
     Active Substance: MUPIROCIN
     Route: 061
  22. GABAPENTIN. [Concomitant]
     Active Substance: GABAPENTIN
  23. FLUCONAZOLE. [Concomitant]
     Active Substance: FLUCONAZOLE

REACTIONS (7)
  - Weight decreased [Unknown]
  - Septic shock [Fatal]
  - Cystitis [Fatal]
  - Cystitis [Unknown]
  - Osteomyelitis [Fatal]
  - Wound [Fatal]
  - Hip fracture [Unknown]
